FAERS Safety Report 7341590-9 (Version None)
Quarter: 2011Q1

REPORT INFORMATION
  Report Type: 
  Country: None (occurrence: None)
  Receive Date: 20110309
  Receipt Date: 20110304
  Transmission Date: 20110831
  Serious: Yes (Other)
  Sender: FDA-Public Use
  Company Number: US-PFIZER INC-2010170485

PATIENT
  Sex: Male

DRUGS (17)
  1. TIAZAC [Concomitant]
     Indication: BLOOD PRESSURE
  2. MIRTAZAPINE [Concomitant]
     Indication: DEPRESSION
     Dosage: UNK
     Dates: start: 20010101, end: 20100101
  3. METOCLOPRAMIDE [Concomitant]
     Indication: GASTROOESOPHAGEAL REFLUX DISEASE
  4. ACETYLSALICYLIC ACID [Concomitant]
     Indication: CARDIAC DISORDER
     Dosage: UNK
     Dates: start: 20010101, end: 20090101
  5. SYNTHROID [Concomitant]
     Indication: THYROID DISORDER
     Dosage: UNK
     Dates: start: 20020101, end: 20100101
  6. OMEPRAZOLE [Concomitant]
     Indication: ULCER
     Dosage: UNK
     Dates: start: 20040101, end: 20100101
  7. GLIPIZIDE [Concomitant]
     Indication: DIABETES MELLITUS
     Dosage: UNK
     Dates: start: 20020101, end: 20100101
  8. TIAZAC [Concomitant]
     Indication: CARDIAC DISORDER
     Dosage: UNK
     Dates: start: 20010101, end: 20100101
  9. SEROQUEL [Concomitant]
     Indication: PSYCHOTIC DISORDER
     Dosage: UNK
     Dates: start: 20020101, end: 20100101
  10. ZAFIRLUKAST [Concomitant]
     Indication: DYSPNOEA
     Dosage: UNK
     Dates: start: 20020101, end: 20090101
  11. METOPROLOL [Concomitant]
     Indication: HYPERTENSION
     Dosage: UNK
     Dates: start: 20020101, end: 20090101
  12. OMEPRAZOLE [Concomitant]
     Indication: GASTROOESOPHAGEAL REFLUX DISEASE
  13. SENNOSIDES [Concomitant]
     Indication: CONSTIPATION
     Dosage: UNK
     Dates: start: 20030101, end: 20090101
  14. METOPROLOL [Concomitant]
     Indication: ANGINA PECTORIS
  15. METOCLOPRAMIDE [Concomitant]
     Indication: ULCER
     Dosage: UNK
     Dates: start: 20030101, end: 20090101
  16. CHANTIX [Suspect]
     Indication: SMOKING CESSATION THERAPY
     Dosage: 1 MG, UNK
     Route: 048
     Dates: start: 20071016, end: 20071106
  17. LISINOPRIL [Concomitant]
     Indication: HYPERTENSION
     Dosage: UNK
     Dates: start: 20020101, end: 20100101

REACTIONS (9)
  - SUICIDAL IDEATION [None]
  - MULTIPLE INJURIES [None]
  - LOSS OF CONSCIOUSNESS [None]
  - AGGRESSION [None]
  - ANXIETY [None]
  - POST-TRAUMATIC STRESS DISORDER [None]
  - NIGHTMARE [None]
  - DEPRESSION [None]
  - SLEEP DISORDER [None]
